FAERS Safety Report 7601221-7 (Version None)
Quarter: 2011Q3

REPORT INFORMATION
  Report Type: 
  Country: None (occurrence: None)
  Receive Date: 20110711
  Receipt Date: 20110630
  Transmission Date: 20111222
  Serious: Yes (Other)
  Sender: FDA-Public Use
  Company Number: DE-GLAXOSMITHKLINE-D0069210B

PATIENT
  Sex: Female

DRUGS (8)
  1. ABILIFY [Suspect]
     Dosage: 10MG SEE DOSAGE TEXT
     Route: 048
     Dates: start: 20110629, end: 20110629
  2. LAMICTAL [Suspect]
     Dosage: 100MG SEE DOSAGE TEXT
     Route: 048
     Dates: start: 20110629, end: 20110629
  3. AMOXICILLIN [Suspect]
     Dosage: 1000MG SEE DOSAGE TEXT
     Route: 048
     Dates: start: 20110629, end: 20110629
  4. BEER [Suspect]
     Dosage: 1BT SEE DOSAGE TEXT
     Route: 048
     Dates: start: 20110629, end: 20110629
  5. SPIRITS [Suspect]
     Dosage: 1BT SEE DOSAGE TEXT
     Route: 048
     Dates: start: 20110629, end: 20110629
  6. FLUOXETINE HCL [Suspect]
     Dosage: 40MG SEE DOSAGE TEXT
     Route: 048
     Dates: start: 20110629, end: 20110629
  7. ALCOHOL [Suspect]
     Route: 048
     Dates: start: 20110629, end: 20110629
  8. DETERGENTS [Suspect]
     Route: 048
     Dates: start: 20110629, end: 20110629

REACTIONS (7)
  - SUICIDE ATTEMPT [None]
  - ENDOTRACHEAL INTUBATION [None]
  - VOMITING [None]
  - GASTROSTOMY TUBE INSERTION [None]
  - INTENTIONAL OVERDOSE [None]
  - MECHANICAL VENTILATION [None]
  - CONVULSION [None]
